FAERS Safety Report 5130504-8 (Version None)
Quarter: 2006Q4

REPORT INFORMATION
  Report Type: 
  Country: None (occurrence: None)
  Receive Date: 20061019
  Receipt Date: 20061012
  Transmission Date: 20070319
  Serious: Yes (Death)
  Sender: FDA-Public Use
  Company Number: CH-GLAXOSMITHKLINE-B0442039A

PATIENT
  Age: 45 Year
  Sex: Male
  Weight: 70 kg

DRUGS (5)
  1. AUGMENTIN [Suspect]
     Indication: PNEUMONIA BACTERIAL
     Dosage: 1.2G THREE TIMES PER DAY
     Route: 040
     Dates: start: 20060928
  2. CIPROFLOXACIN [Suspect]
     Indication: PNEUMONIA BACTERIAL
     Dosage: 500MG TWICE PER DAY
     Route: 048
     Dates: start: 20060927, end: 20060928
  3. ZOLPIDEM TARTRATE [Suspect]
     Indication: DRUG USE FOR UNKNOWN INDICATION
     Dosage: 10MG PER DAY
     Route: 048
     Dates: start: 20060927, end: 20060929
  4. DAFALGAN [Suspect]
     Indication: DRUG USE FOR UNKNOWN INDICATION
     Dosage: 1G FOUR TIMES PER DAY
     Route: 048
     Dates: start: 20060928, end: 20060929
  5. ANTINEOPLASTIC AGENT [Suspect]
     Indication: SYNOVIAL SARCOMA
     Dosage: 37.5MG PER DAY
     Route: 048
     Dates: start: 20060914, end: 20060928

REACTIONS (2)
  - HEPATIC FAILURE [None]
  - LACTIC ACIDOSIS [None]
